FAERS Safety Report 18726664 (Version 1)
Quarter: 2021Q1

REPORT INFORMATION
  Report Type: Spontaneous
  Country: US (occurrence: US)
  Receive Date: 20210112
  Receipt Date: 20210112
  Transmission Date: 20210419
  Serious: Yes (Life-Threatening, Hospitalization, Other)
  Sender: FDA-Public Use
  Company Number: US-AUROBINDO-AUR-APL-2021-000486

PATIENT
  Age: 58 Year
  Sex: Male

DRUGS (1)
  1. IBUPROFEN 200 MG TABLETS USP (OTC) [Suspect]
     Active Substance: IBUPROFEN
     Indication: PAIN
     Dosage: 60 DOSAGE FORM, ONCE A DAY (UP TO 12 GRAMS/DAY)
     Route: 065

REACTIONS (6)
  - Renal tubular acidosis [Recovered/Resolved]
  - Hypokalaemia [Recovered/Resolved]
  - Toxicity to various agents [Unknown]
  - Intentional overdose [Recovered/Resolved]
  - Electrocardiogram QRS complex prolonged [Unknown]
  - Metabolic acidosis [Recovered/Resolved]
